FAERS Safety Report 10039273 (Version 2)
Quarter: 2014Q2

REPORT INFORMATION
  Report Type: Spontaneous
  Country: FR (occurrence: FR)
  Receive Date: 20140326
  Receipt Date: 20140402
  Transmission Date: 20141212
  Serious: Yes (Hospitalization, Other)
  Sender: FDA-Public Use
  Company Number: FR-PFIZER INC-2014080027

PATIENT
  Age: 76 Year
  Sex: Male

DRUGS (6)
  1. TAHOR [Suspect]
     Dosage: 10 MG, 1X/DAY
     Route: 048
  2. PREVISCAN [Interacting]
     Dosage: 1 DOSAGE FORM ON ODD DAY AND 3/4 DOSAGE FORM ON EVEN DAY
     Route: 048
     Dates: start: 2004, end: 20131219
  3. PERMIXON [Interacting]
     Dosage: 160 MG, 1X/DAY
     Route: 048
  4. ESOMEPRAZOLE SODIUM [Concomitant]
     Dosage: 20 MG, 1X/DAY
     Route: 048
  5. SOPROL [Concomitant]
     Dosage: 10 MG, 1X/DAY
     Route: 048
  6. LASILIX [Concomitant]
     Dosage: 40 MG, 1X/DAY
     Route: 048

REACTIONS (2)
  - Haemorrhagic diathesis [Recovered/Resolved]
  - Drug interaction [Unknown]
